FAERS Safety Report 11426204 (Version 1)
Quarter: 2015Q3

REPORT INFORMATION
  Report Type: Spontaneous
  Country: US (occurrence: US)
  Receive Date: 20150821
  Receipt Date: 20150821
  Transmission Date: 20151125
  Serious: No
  Sender: FDA-Public Use
  Company Number: US-ELI_LILLY_AND_COMPANY-US201302001316

PATIENT
  Sex: Male

DRUGS (8)
  1. FOLIC ACID. [Concomitant]
     Active Substance: FOLIC ACID
  2. CIALIS [Suspect]
     Active Substance: TADALAFIL
     Indication: BENIGN PROSTATIC HYPERPLASIA
     Dosage: 5 MG, QD
     Dates: start: 20130125
  3. COLCHICINE. [Concomitant]
     Active Substance: COLCHICINE
  4. METAMUCIL [Concomitant]
     Active Substance: PLANTAGO SEED
  5. ASPIRIN. [Concomitant]
     Active Substance: ASPIRIN
  6. OMEGA 3 FISH OIL [Concomitant]
     Active Substance: FISH OIL\OMEGA-3 FATTY ACIDS
  7. SIMVASTATIN. [Concomitant]
     Active Substance: SIMVASTATIN
  8. VITAMIN D [Concomitant]
     Active Substance: CHOLECALCIFEROL

REACTIONS (1)
  - Blood glucose decreased [Recovered/Resolved]
